FAERS Safety Report 5985969-6 (Version None)
Quarter: 2008Q4

REPORT INFORMATION
  Report Type: 
  Country: None (occurrence: None)
  Receive Date: 20081205
  Receipt Date: 20081205
  Transmission Date: 20090506
  Serious: Yes (Hospitalization)
  Sender: FDA-Public Use
  Company Number: None

PATIENT
  Age: 75 Year
  Sex: Male
  Weight: 89 kg

DRUGS (10)
  1. BEVACIZUMAB [Suspect]
     Indication: GLIOBLASTOMA MULTIFORME
     Dosage: 890MG Q 2 WEEKS IV
     Route: 042
     Dates: start: 20080801
  2. BEVACIZUMAB [Suspect]
     Indication: GLIOBLASTOMA MULTIFORME
     Dosage: 890MG Q 2 WEEKS IV
     Route: 042
     Dates: start: 20080815
  3. TEMOZOLOMIDE [Suspect]
     Indication: GLIOBLASTOMA MULTIFORME
     Dosage: 430MG QD FOR FIVE DAYS PO
     Route: 048
     Dates: start: 20080801, end: 20080805
  4. CARDIZEM CD [Concomitant]
  5. COZAAR [Concomitant]
  6. ALLEGRA [Concomitant]
  7. FLONASE [Concomitant]
  8. FLOVENT [Concomitant]
  9. KEPPRA [Concomitant]
  10. ZOCOR [Concomitant]

REACTIONS (2)
  - FEBRILE NEUTROPENIA [None]
  - WHEEZING [None]
